FAERS Safety Report 20488372 (Version 3)
Quarter: 2022Q1

REPORT INFORMATION
  Report Type: Report from Study
  Country: JP (occurrence: JP)
  Receive Date: 20220218
  Receipt Date: 20220330
  Transmission Date: 20220423
  Serious: No
  Sender: FDA-Public Use
  Company Number: JP-JNJFOC-A-CH2019-187032

PATIENT
  Age: 22 Year
  Sex: Female
  Weight: 42.4 kg

DRUGS (53)
  1. OPSUMIT [Suspect]
     Active Substance: MACITENTAN
     Indication: Pulmonary arterial hypertension
     Dosage: 10 MG, QPM
     Route: 048
     Dates: start: 20181013
  2. OPSUMIT [Suspect]
     Active Substance: MACITENTAN
     Dosage: 10 MG, Q AM
     Route: 048
     Dates: start: 20181013, end: 20181015
  3. OPSUMIT [Suspect]
     Active Substance: MACITENTAN
     Route: 048
     Dates: start: 20181016
  4. UPTRAVI [Suspect]
     Active Substance: SELEXIPAG
     Indication: Pulmonary arterial hypertension
     Dosage: 0.2 MG, BID
     Route: 048
     Dates: start: 20181016, end: 20181018
  5. UPTRAVI [Suspect]
     Active Substance: SELEXIPAG
     Dosage: 0.4 MG, BID
     Route: 048
     Dates: start: 20181019, end: 20181022
  6. UPTRAVI [Suspect]
     Active Substance: SELEXIPAG
     Dosage: 1.0 MG, QD
     Route: 048
     Dates: start: 20181023, end: 20181101
  7. UPTRAVI [Suspect]
     Active Substance: SELEXIPAG
     Dosage: 0.4 MG, TID
     Route: 048
     Dates: start: 20181102, end: 20181108
  8. UPTRAVI [Suspect]
     Active Substance: SELEXIPAG
     Dosage: 1.4 MG, QD
     Route: 048
     Dates: start: 20181109, end: 20181115
  9. UPTRAVI [Suspect]
     Active Substance: SELEXIPAG
     Dosage: 1.6 MG, QD
     Route: 048
     Dates: start: 20181116, end: 20181121
  10. UPTRAVI [Suspect]
     Active Substance: SELEXIPAG
     Dosage: 0.6 MG, TID
     Route: 048
     Dates: start: 20181122, end: 20181128
  11. UPTRAVI [Suspect]
     Active Substance: SELEXIPAG
     Dosage: 2.0 MG, QD
     Route: 048
     Dates: start: 20181129, end: 20190228
  12. UPTRAVI [Suspect]
     Active Substance: SELEXIPAG
     Dosage: 2.2 MG, QD
     Route: 048
     Dates: start: 20190301, end: 20190315
  13. UPTRAVI [Suspect]
     Active Substance: SELEXIPAG
     Dosage: 0.8 MG, TID
     Route: 048
     Dates: start: 20190316, end: 20190331
  14. UPTRAVI [Suspect]
     Active Substance: SELEXIPAG
     Dosage: 2.6 MG, QD
     Route: 048
     Dates: start: 20190401, end: 20190411
  15. UPTRAVI [Suspect]
     Active Substance: SELEXIPAG
     Dosage: 2.8 MG, QD
     Route: 048
     Dates: start: 20190412, end: 20190425
  16. UPTRAVI [Suspect]
     Active Substance: SELEXIPAG
     Dosage: 1 MG, TID
     Route: 048
     Dates: start: 20190426, end: 20190509
  17. UPTRAVI [Suspect]
     Active Substance: SELEXIPAG
     Dosage: 3.2 MG, QD
     Route: 048
     Dates: start: 20190510
  18. UPTRAVI [Suspect]
     Active Substance: SELEXIPAG
     Dosage: 1.0 MG IN THE MORNING, 1.0 MG IN THE AFTERNOON, 1.2 MG IN THE EVENING
     Route: 048
     Dates: end: 20210729
  19. UPTRAVI [Suspect]
     Active Substance: SELEXIPAG
     Dosage: 0.8 MG IN THE MORNING, 0.8 MG IN THE AFTERNOON, 1.2 MG IN THE EVENING
     Route: 048
     Dates: start: 20210730, end: 20210826
  20. UPTRAVI [Suspect]
     Active Substance: SELEXIPAG
     Dosage: 0.8 MG IN THE MORNING, 0.6 MG IN THE AFTERNOON, 1.2 MG IN THE EVENING
     Route: 048
     Dates: start: 20210827, end: 20210909
  21. UPTRAVI [Suspect]
     Active Substance: SELEXIPAG
     Dosage: 0.8 MG IN THE MORNING, 0.8 MG IN THE AFTERNOON, 1.2 MG IN THE EVENING
     Route: 048
     Dates: start: 20210910
  22. PREDONINE [Suspect]
     Active Substance: PREDNISOLONE
     Indication: Mixed connective tissue disease
     Dosage: UNK
     Route: 048
  23. SPIRONOLACTONE [Suspect]
     Active Substance: SPIRONOLACTONE
     Indication: Right ventricular failure
     Dosage: 1-2 TIMES / DAY
     Route: 048
     Dates: start: 20180927
  24. SPIRONOLACTONE [Suspect]
     Active Substance: SPIRONOLACTONE
     Route: 048
     Dates: start: 20180115
  25. SPIRONOLACTONE [Suspect]
     Active Substance: SPIRONOLACTONE
     Dosage: 25MG,50MG
     Route: 048
     Dates: start: 20180116, end: 2020
  26. SPIRONOLACTONE [Suspect]
     Active Substance: SPIRONOLACTONE
     Route: 048
     Dates: start: 2020
  27. SPIRONOLACTONE [Suspect]
     Active Substance: SPIRONOLACTONE
     Dosage: 25 MG TO 37.5 MG
     Route: 048
     Dates: start: 2020
  28. AZOSEMIDE [Suspect]
     Active Substance: AZOSEMIDE
     Indication: Right ventricular failure
     Dosage: 15-30MG(30MG IN THE MORNING,15MG IN THE AFTERNOON)
     Route: 048
     Dates: start: 20180929, end: 20191204
  29. AZOSEMIDE [Suspect]
     Active Substance: AZOSEMIDE
     Route: 048
     Dates: start: 20191205, end: 2020
  30. AZOSEMIDE [Suspect]
     Active Substance: AZOSEMIDE
     Dosage: 15MG,30MG
     Route: 048
     Dates: start: 2020
  31. AZOSEMIDE [Suspect]
     Active Substance: AZOSEMIDE
     Route: 048
  32. ADCIRCA [Suspect]
     Active Substance: TADALAFIL
     Indication: Pulmonary arterial hypertension
     Dosage: 40 MG, QD
     Route: 048
     Dates: start: 20181016, end: 20181205
  33. ADCIRCA [Suspect]
     Active Substance: TADALAFIL
     Dosage: 40 MG, QD
     Dates: start: 20190131
  34. ADEMPAS [Suspect]
     Active Substance: RIOCIGUAT
     Indication: Pulmonary arterial hypertension
     Dosage: 1-2MG
     Route: 048
     Dates: start: 20181206, end: 20190130
  35. HERBALS [Suspect]
     Active Substance: HERBALS
     Indication: Prophylaxis of nausea and vomiting
     Route: 048
     Dates: end: 20200116
  36. RABEPRAZOLE SODIUM [Concomitant]
     Active Substance: RABEPRAZOLE SODIUM
     Indication: Gastrooesophageal reflux disease
     Dosage: QD
     Route: 048
     Dates: start: 20181012, end: 20181217
  37. CELLCEPT [Concomitant]
     Active Substance: MYCOPHENOLATE MOFETIL
     Indication: Mixed connective tissue disease
     Dosage: 2000 MG, QD
  38. CELLCEPT [Concomitant]
     Active Substance: MYCOPHENOLATE MOFETIL
     Indication: Lupus nephritis
     Dosage: 250-1000 MG
     Route: 048
  39. CELLCEPT [Concomitant]
     Active Substance: MYCOPHENOLATE MOFETIL
     Route: 048
  40. ALFACALCIDOL [Concomitant]
     Active Substance: ALFACALCIDOL
     Indication: Hypocalcaemia
     Route: 048
     Dates: start: 20200820
  41. ALFACALCIDOL [Concomitant]
     Active Substance: ALFACALCIDOL
     Indication: Osteoporosis
     Dosage: 0.25 TO 0.5 MICROGRAMS
     Route: 048
     Dates: start: 20210326
  42. CALCIUM ASPARTATE [Concomitant]
     Active Substance: CALCIUM ASPARTATE
     Indication: Hypocalcaemia
     Dosage: 1 DOSAGE FORMS
     Route: 048
     Dates: start: 20180511, end: 20181206
  43. CALCIUM ASPARTATE [Concomitant]
     Active Substance: CALCIUM ASPARTATE
     Dosage: 1-2 DOSAGE FORMS
     Route: 048
     Dates: start: 20190315
  44. CALCIUM ASPARTATE [Concomitant]
     Active Substance: CALCIUM ASPARTATE
     Route: 048
     Dates: start: 20200820
  45. CALCIUM LACTATE [Concomitant]
     Active Substance: CALCIUM LACTATE
     Indication: Hypocalcaemia
     Route: 048
     Dates: start: 20181207, end: 20181227
  46. DIPYRIDAMOLE [Concomitant]
     Active Substance: DIPYRIDAMOLE
     Indication: Thrombosis prophylaxis
     Dosage: 100 MG, QD
     Dates: end: 20181102
  47. DIPYRIDAMOLE [Concomitant]
     Active Substance: DIPYRIDAMOLE
     Route: 048
     Dates: start: 20181102, end: 20181102
  48. DIPYRIDAMOLE [Concomitant]
     Active Substance: DIPYRIDAMOLE
     Dosage: DOSE UNKNOWN
     Route: 048
  49. LOPERAMIDE HYDROCHLORIDE [Concomitant]
     Active Substance: LOPERAMIDE HYDROCHLORIDE
     Indication: Diarrhoea
     Dosage: P.R.N
     Route: 048
     Dates: start: 20200116, end: 20200228
  50. PREDNISOLONE [Concomitant]
     Active Substance: PREDNISOLONE
     Indication: Mixed connective tissue disease
     Dosage: 1-2 MG
     Route: 048
     Dates: start: 20190104
  51. PREDNISOLONE [Concomitant]
     Active Substance: PREDNISOLONE
     Route: 048
  52. PREDNISOLONE [Concomitant]
     Active Substance: PREDNISOLONE
     Dosage: 1 MG TO 2 MG
     Route: 048
  53. PREDNISOLONE [Concomitant]
     Active Substance: PREDNISOLONE
     Dosage: 0.3-0.4G
     Route: 048
     Dates: start: 20181227, end: 20190103

REACTIONS (21)
  - Sialoadenitis [Recovered/Resolved]
  - Renal impairment [Recovered/Resolved]
  - Hypokalaemia [Recovered/Resolved]
  - Pericardial effusion [Not Recovered/Not Resolved]
  - Flushing [Recovered/Resolved]
  - Hot flush [Recovered/Resolved]
  - Pain in jaw [Recovered/Resolved]
  - Nausea [Recovered/Resolved]
  - Headache [Recovered/Resolved]
  - Diarrhoea [Recovered/Resolved]
  - Head discomfort [Recovered/Resolved]
  - Palpitations [Recovered/Resolved]
  - Heart rate increased [Recovered/Resolved]
  - Sinus tachycardia [Recovering/Resolving]
  - Iron deficiency anaemia [Recovered/Resolved]
  - Parotitis [Recovered/Resolved]
  - Lymphadenitis [Recovered/Resolved]
  - Dyspnoea [Recovered/Resolved]
  - Diarrhoea [Recovering/Resolving]
  - Inflammation [Recovered/Resolved]
  - Viral diarrhoea [Recovered/Resolved]

NARRATIVE: CASE EVENT DATE: 20181001
